FAERS Safety Report 9418426 (Version 2)
Quarter: 2013Q3

REPORT INFORMATION
  Report Type: Spontaneous
  Country: US (occurrence: US)
  Receive Date: 20130725
  Receipt Date: 20130822
  Transmission Date: 20140515
  Serious: No
  Sender: FDA-Public Use
  Company Number: US-BIOGENIDEC-2013BI066426

PATIENT
  Age: 60 Year
  Sex: Female

DRUGS (1)
  1. TYSABRI [Suspect]
     Indication: MULTIPLE SCLEROSIS
     Route: 042
     Dates: start: 20130621

REACTIONS (7)
  - Dysstasia [Recovered/Resolved]
  - Musculoskeletal disorder [Recovered/Resolved]
  - Muscle twitching [Recovered/Resolved]
  - Tic [Recovered/Resolved]
  - Loss of control of legs [Recovered/Resolved]
  - Fatigue [Recovered/Resolved]
  - Multiple sclerosis relapse [Unknown]
